FAERS Safety Report 23207153 (Version 1)
Quarter: 2023Q4

REPORT INFORMATION
  Report Type: Spontaneous
  Country: US (occurrence: US)
  Receive Date: 20231120
  Receipt Date: 20231120
  Transmission Date: 20240110
  Serious: No
  Sender: FDA-Public Use
  Company Number: US-BRISTOL-MYERS SQUIBB COMPANY-2023-156064

PATIENT
  Age: 51 Year
  Sex: Male

DRUGS (11)
  1. MAVACAMTEN [Suspect]
     Active Substance: MAVACAMTEN
     Indication: Hypertrophic cardiomyopathy
     Route: 048
     Dates: start: 20221129, end: 20230207
  2. MAVACAMTEN [Suspect]
     Active Substance: MAVACAMTEN
     Route: 048
     Dates: start: 20230207, end: 20230515
  3. MAVACAMTEN [Suspect]
     Active Substance: MAVACAMTEN
     Route: 048
     Dates: start: 20230515, end: 20230606
  4. ELIQUIS [Concomitant]
     Active Substance: APIXABAN
     Indication: Arrhythmia
     Route: 048
     Dates: start: 20220907
  5. ASPIRIN [Concomitant]
     Active Substance: ASPIRIN
     Indication: Coronary artery disease
     Route: 048
     Dates: start: 20220613
  6. FUROSEMIDE [Concomitant]
     Active Substance: FUROSEMIDE
     Indication: Cardiac failure congestive
     Route: 048
     Dates: start: 20220313
  7. METOPROLOL [Concomitant]
     Active Substance: METOPROLOL
     Indication: Arrhythmia
     Route: 048
     Dates: start: 20160428
  8. VERAPAMIL [Concomitant]
     Active Substance: VERAPAMIL HYDROCHLORIDE
     Indication: Arrhythmia
     Route: 048
     Dates: start: 20220818
  9. PRAVASTATIN [Concomitant]
     Active Substance: PRAVASTATIN
     Indication: Hyperlipidaemia
     Route: 048
     Dates: start: 20211116
  10. PREDNISONE [Concomitant]
     Active Substance: PREDNISONE
     Indication: Septal myectomy
     Route: 048
     Dates: start: 20220928
  11. COLCHICINE [Concomitant]
     Active Substance: COLCHICINE
     Indication: Septal myectomy
     Route: 048
     Dates: start: 20231002

REACTIONS (1)
  - Gastrooesophageal reflux disease [Not Recovered/Not Resolved]

NARRATIVE: CASE EVENT DATE: 20221229
